FAERS Safety Report 5009851-6 (Version None)
Quarter: 2006Q2

REPORT INFORMATION
  Report Type: 
  Country: None (occurrence: None)
  Receive Date: 20060511
  Receipt Date: 20060331
  Transmission Date: 20061013
  Serious: Yes (Other)
  Sender: FDA-Public Use
  Company Number: WSDF_00534

PATIENT
  Age: 34 Year
  Sex: Female

DRUGS (6)
  1. WINRHO SDF [Suspect]
     Indication: RHESUS HAEMOLYTIC DISEASE OF NEWBORN
     Dosage: 300 MCG ONCE
     Dates: start: 20050210, end: 20050210
  2. WINRHO SDF [Suspect]
     Indication: RHESUS HAEMOLYTIC DISEASE OF NEWBORN
  3. WINRHO SDF [Suspect]
     Indication: RHESUS HAEMOLYTIC DISEASE OF NEWBORN
     Dosage: 300 MCG ONCE
     Dates: start: 20050303, end: 20050303
  4. WINRHO SDF [Suspect]
     Indication: RHESUS HAEMOLYTIC DISEASE OF NEWBORN
  5. WINRHO SDF [Suspect]
     Indication: RHESUS HAEMOLYTIC DISEASE OF NEWBORN
     Dosage: 300 MCG ONCE
     Dates: start: 20050316, end: 20050316
  6. WINRHO SDF [Suspect]
     Indication: RHESUS HAEMOLYTIC DISEASE OF NEWBORN

REACTIONS (1)
  - ANTI FACTOR XI ANTIBODY POSITIVE [None]
